FAERS Safety Report 8443475-3 (Version None)
Quarter: 2012Q2

REPORT INFORMATION
  Report Type: 
  Country: None (occurrence: None)
  Receive Date: 20120608
  Receipt Date: 20120522
  Transmission Date: 20120825
  Serious: Yes (Hospitalization, Other)
  Sender: FDA-Public Use
  Company Number: JPI-P-021538

PATIENT
  Age: 55 Year
  Sex: Female

DRUGS (2)
  1. XYREM [Suspect]
     Indication: SLEEP DISORDER
     Dosage: 4.5 GM (2.25 GM,2 IN 1 D),ORAL, ORAL  9 GM (4.5 GM,2 IN 1 D),ORAL
     Route: 048
     Dates: start: 20120320
  2. XYREM [Suspect]
     Indication: SLEEP DISORDER
     Dosage: 4.5 GM (2.25 GM,2 IN 1 D),ORAL, ORAL  9 GM (4.5 GM,2 IN 1 D),ORAL
     Route: 048
     Dates: start: 20080528

REACTIONS (9)
  - FAECAL INCONTINENCE [None]
  - OVERDOSE [None]
  - CONFUSIONAL STATE [None]
  - TREMOR [None]
  - DEPRESSION [None]
  - BLOOD PRESSURE DECREASED [None]
  - UNRESPONSIVE TO STIMULI [None]
  - ASPIRATION [None]
  - DYSPNOEA [None]
